FAERS Safety Report 9030436 (Version 1)
Quarter: 2013Q1

REPORT INFORMATION
  Report Type: Spontaneous
  Country: TW (occurrence: TW)
  Receive Date: 20130122
  Receipt Date: 20130122
  Transmission Date: 20140127
  Serious: Yes (Other)
  Sender: FDA-Public Use
  Company Number: TW-JNJFOC-20130109925

PATIENT
  Age: 42 Year
  Sex: Male

DRUGS (5)
  1. PALIPERIDONE [Suspect]
     Indication: SCHIZOPHRENIA
     Route: 048
  2. PALIPERIDONE [Suspect]
     Indication: SCHIZOPHRENIA
     Route: 048
  3. TRIHEXYPHENIDYL [Concomitant]
  4. CLONAZEPAM [Concomitant]
     Route: 065
  5. ESTAZOLAM [Concomitant]
     Route: 065

REACTIONS (2)
  - Pleurothotonus [Recovered/Resolved]
  - Psychotic disorder [Recovered/Resolved]
